FAERS Safety Report 16904884 (Version 1)
Quarter: 2019Q4

REPORT INFORMATION
  Report Type: Report from Study
  Country: US (occurrence: US)
  Receive Date: 20191010
  Receipt Date: 20191010
  Transmission Date: 20200122
  Serious: Yes (Other)
  Sender: FDA-Public Use
  Company Number: US-GLAXOSMITHKLINE-2019-TSO03071-US

PATIENT
  Age: 66 Year
  Sex: Female
  Weight: 67.39 kg

DRUGS (2)
  1. NIRAPARIB [Suspect]
     Active Substance: NIRAPARIB
     Indication: OVARIAN CANCER
     Dosage: 200 MG, QD
     Route: 048
     Dates: start: 20190823
  2. NIRAPARIB [Suspect]
     Active Substance: NIRAPARIB
     Dosage: 200 MG, QPM WITH FOOD
     Route: 048
     Dates: end: 20190911

REACTIONS (5)
  - Renal impairment [Unknown]
  - Tachycardia [Unknown]
  - Anxiety [Not Recovered/Not Resolved]
  - Nasal congestion [Unknown]
  - Abdominal pain [Unknown]

NARRATIVE: CASE EVENT DATE: 201908
